FAERS Safety Report 22525050 (Version 3)
Quarter: 2023Q2

REPORT INFORMATION
  Report Type: Spontaneous
  Country: FR (occurrence: FR)
  Receive Date: 20230606
  Receipt Date: 20230620
  Transmission Date: 20230722
  Serious: Yes (Other)
  Sender: FDA-Public Use
  Company Number: FR-MYLANLABS-2023M1053983

PATIENT
  Age: 77 Year
  Sex: Male

DRUGS (9)
  1. METHOTREXATE SODIUM [Suspect]
     Active Substance: METHOTREXATE SODIUM
     Indication: Central nervous system lymphoma
     Dosage: FIRST LINE WITH R-MPVA PROTOCOL
  2. VINCRISTINE [Concomitant]
     Active Substance: VINCRISTINE
     Indication: Central nervous system lymphoma
     Dosage: FIRST LINE WITH R-MPVA PROTOCOL
  3. PROCARBAZINE [Concomitant]
     Active Substance: PROCARBAZINE
     Indication: Central nervous system lymphoma
     Dosage: FIRST LINE WITH R-MPVA PROTOCOL
  4. RITUXIMAB [Concomitant]
     Active Substance: RITUXIMAB
     Indication: Central nervous system lymphoma
     Dosage: FIRST LINE WITH R-MPVA PROTOCOL
  5. CYTARABINE [Concomitant]
     Active Substance: CYTARABINE
     Indication: Central nervous system lymphoma
     Dosage: FIRST LINE WITH R-MPVA PROTOCOL
  6. LENALIDOMIDE [Concomitant]
     Active Substance: LENALIDOMIDE
  7. IBRUTINIB [Concomitant]
     Active Substance: IBRUTINIB
     Dosage: 6 1-DAY CYCLES
  8. IFOSFAMIDE [Concomitant]
     Active Substance: IFOSFAMIDE
     Dosage: 6 1-DAY CYCLES
  9. ETOPOSIDE [Concomitant]
     Active Substance: ETOPOSIDE
     Dosage: 6 1-DAY CYCLES

REACTIONS (2)
  - Nephropathy toxic [Recovered/Resolved]
  - Off label use [Unknown]
